FAERS Safety Report 20136934 (Version 1)
Quarter: 2021Q4

REPORT INFORMATION
  Report Type: Spontaneous
  Country: US (occurrence: US)
  Receive Date: 20211201
  Receipt Date: 20211201
  Transmission Date: 20220303
  Serious: No
  Sender: FDA-Public Use
  Company Number: US-MYLANLABS-2021M1075762

PATIENT
  Sex: Female

DRUGS (1)
  1. ESTRADIOL TRANSDERMAL SYSTEM [Suspect]
     Active Substance: ESTRADIOL
     Indication: Blood oestrogen abnormal
     Dosage: 0.075 MILLIGRAM, QD (TWICE WEEKLY)
     Route: 062
     Dates: start: 20210817

REACTIONS (4)
  - Application site erythema [Unknown]
  - Application site pruritus [Unknown]
  - Wrong technique in product usage process [Unknown]
  - Product packaging issue [Unknown]
